FAERS Safety Report 7932278-1 (Version None)
Quarter: 2011Q4

REPORT INFORMATION
  Report Type: 
  Country: None (occurrence: None)
  Receive Date: 20111121
  Receipt Date: 20110110
  Transmission Date: 20120403
  Serious: No
  Sender: FDA-Public Use
  Company Number: US-AMGEN-USASP2011001323

PATIENT
  Sex: Female

DRUGS (3)
  1. TREXALL [Concomitant]
     Dosage: 1 MG, UNK
  2. ENBREL [Suspect]
     Indication: RHEUMATOID ARTHRITIS
     Dosage: 50 MG, QWK
     Dates: start: 20070907
  3. PLAQUENIL [Concomitant]
     Dosage: 2 MG, QD
     Dates: start: 19990101

REACTIONS (2)
  - INTERVERTEBRAL DISC PROTRUSION [None]
  - RHEUMATOID ARTHRITIS [None]
